FAERS Safety Report 5279330-X (Version None)
Quarter: 2007Q1

REPORT INFORMATION
  Report Type: 
  Country: None (occurrence: None)
  Receive Date: 20070328
  Receipt Date: 20060331
  Transmission Date: 20070707
  Serious: No
  Sender: FDA-Public Use
  Company Number: US-AMGEN-US173367

PATIENT
  Sex: Male

DRUGS (4)
  1. NEULASTA [Suspect]
     Indication: CHEMOTHERAPY
     Route: 058
     Dates: start: 20050317
  2. IFOSFAMIDE [Concomitant]
     Route: 065
  3. MESNA [Concomitant]
     Route: 065
  4. DOXORUBICIN HCL [Concomitant]
     Route: 065

REACTIONS (4)
  - ARTHRALGIA [None]
  - BACK PAIN [None]
  - MUSCULOSKELETAL CHEST PAIN [None]
  - PAIN IN EXTREMITY [None]
